FAERS Safety Report 11911193 (Version 1)
Quarter: 2016Q1

REPORT INFORMATION
  Report Type: Spontaneous
  Country: IT (occurrence: IT)
  Receive Date: 20160112
  Receipt Date: 20160112
  Transmission Date: 20160526
  Serious: Yes (Hospitalization)
  Sender: FDA-Public Use
  Company Number: IT-BAYER-2016-005491

PATIENT
  Age: 91 Year
  Sex: Male

DRUGS (4)
  1. NIMOTOP [Concomitant]
     Active Substance: NIMODIPINE
     Dosage: DAILY DOSE 1 DF
     Route: 048
  2. CARDIOASPIRIN [Suspect]
     Active Substance: ASPIRIN
     Indication: THROMBOSIS PROPHYLAXIS
     Dosage: DAILY DOSE 100 MG
     Route: 048
     Dates: start: 20150101, end: 20151206
  3. TALOFEN [Concomitant]
     Active Substance: PROMAZINE HYDROCHLORIDE
     Dosage: DAILY DOSE 1 DF
     Route: 048
  4. LEVOSULPIRIDE [Concomitant]
     Active Substance: LEVOSULPIRIDE
     Dosage: DAILY DOSE 1 DF
     Route: 048

REACTIONS (4)
  - Haematemesis [Recovering/Resolving]
  - Vomiting [Recovering/Resolving]
  - Oesophagitis [Recovering/Resolving]
  - Hiccups [Recovering/Resolving]

NARRATIVE: CASE EVENT DATE: 20151205
